FAERS Safety Report 18125896 (Version 4)
Quarter: 2021Q4

REPORT INFORMATION
  Report Type: Spontaneous
  Country: US (occurrence: None)
  Receive Date: 20200807
  Receipt Date: 20211224
  Transmission Date: 20220303
  Serious: Yes (Death, Other)
  Sender: FDA-Public Use
  Company Number: 2020SE97518

PATIENT
  Age: 64 Year
  Sex: Male
  Weight: 122.5 kg

DRUGS (49)
  1. NEXIUM [Suspect]
     Active Substance: ESOMEPRAZOLE MAGNESIUM
     Indication: Gastrooesophageal reflux disease
     Route: 048
     Dates: start: 199801, end: 201812
  2. NEXIUM [Suspect]
     Active Substance: ESOMEPRAZOLE MAGNESIUM
     Indication: Gastrooesophageal reflux disease
     Route: 048
     Dates: start: 2001, end: 2018
  3. PRILOSEC [Suspect]
     Active Substance: OMEPRAZOLE MAGNESIUM
     Indication: Gastrooesophageal reflux disease
     Route: 048
     Dates: start: 199801, end: 201812
  4. PRILOSEC [Suspect]
     Active Substance: OMEPRAZOLE MAGNESIUM
     Indication: Gastrooesophageal reflux disease
     Route: 048
     Dates: start: 1990, end: 2018
  5. PRILOSEC OTC [Suspect]
     Active Substance: OMEPRAZOLE MAGNESIUM
     Indication: Gastrooesophageal reflux disease
     Route: 048
     Dates: start: 199801, end: 201812
  6. PRILOSEC OTC [Suspect]
     Active Substance: OMEPRAZOLE MAGNESIUM
     Indication: Gastrooesophageal reflux disease
     Route: 048
     Dates: start: 2005, end: 2018
  7. PREVACID [Suspect]
     Active Substance: LANSOPRAZOLE
     Indication: Gastrooesophageal reflux disease
     Route: 065
     Dates: start: 1996, end: 2018
  8. MULTI-VITAMIN [Concomitant]
     Active Substance: .ALPHA.-TOCOPHEROL ACETATE, DL-\ASCORBIC ACID\CYANOCOBALAMIN\FLUORIDE ION\FOLIC ACID\NIACIN\PYRIDOXI
     Indication: Cardiac disorder
     Dates: start: 2015, end: 2020
  9. FISH OIL [Concomitant]
     Active Substance: FISH OIL
     Indication: Cardiac disorder
     Dates: start: 2015, end: 2020
  10. VITAMIN B6 [Concomitant]
     Active Substance: PYRIDOXINE HYDROCHLORIDE
     Indication: Anaemia
     Dates: start: 2015, end: 2020
  11. VITAMIN D [Concomitant]
     Active Substance: VITAMIN D NOS
     Indication: Blood calcium
     Dates: start: 2015, end: 2020
  12. ACTOS [Concomitant]
     Active Substance: PIOGLITAZONE HYDROCHLORIDE
  13. METOPROLOL TARTRATE [Concomitant]
     Active Substance: METOPROLOL TARTRATE
  14. CIPROFLOXACIN [Concomitant]
     Active Substance: CIPROFLOXACIN
  15. AZITHROMYCIN [Concomitant]
     Active Substance: AZITHROMYCIN
  16. HYZAAR [Concomitant]
     Active Substance: HYDROCHLOROTHIAZIDE\LOSARTAN POTASSIUM
  17. CLINDAMYCIN [Concomitant]
     Active Substance: CLINDAMYCIN
  18. TRILYTE [Concomitant]
     Active Substance: POLYETHYLENE GLYCOL 3350\POTASSIUM CHLORIDE\SODIUM BICARBONATE\SODIUM CHLORIDE
  19. CEFDINIR [Concomitant]
     Active Substance: CEFDINIR
  20. TRICOR [Concomitant]
     Active Substance: FENOFIBRATE
  21. METHYLPREDNISOLONE [Concomitant]
     Active Substance: METHYLPREDNISOLONE
  22. VIAGRA [Concomitant]
     Active Substance: SILDENAFIL CITRATE
  23. MECLIZINE [Concomitant]
     Active Substance: MECLIZINE HYDROCHLORIDE
  24. LEVAQUIN [Concomitant]
     Active Substance: LEVOFLOXACIN
  25. NITROGLYCERIN [Concomitant]
     Active Substance: NITROGLYCERIN
  26. PLAVIX [Concomitant]
     Active Substance: CLOPIDOGREL BISULFATE
  27. SIMVASTATIN [Concomitant]
     Active Substance: SIMVASTATIN
  28. VENTOLIN [Concomitant]
     Active Substance: ALBUTEROL SULFATE
  29. RANEXA [Concomitant]
     Active Substance: RANOLAZINE
  30. GEMFIBROZIL [Concomitant]
     Active Substance: GEMFIBROZIL
  31. CEFPROZIL [Concomitant]
     Active Substance: CEFPROZIL
  32. NITROLINGUAL [Concomitant]
     Active Substance: NITROGLYCERIN
  33. ADVAIR HFA [Concomitant]
     Active Substance: FLUTICASONE PROPIONATE\SALMETEROL XINAFOATE
  34. BESIVANCE [Concomitant]
     Active Substance: BESIFLOXACIN
  35. PROLENSA [Concomitant]
     Active Substance: BROMFENAC SODIUM
  36. OFLOXACIN [Concomitant]
     Active Substance: OFLOXACIN
  37. MONTELUKAST [Concomitant]
     Active Substance: MONTELUKAST SODIUM
  38. LACTULOSE [Concomitant]
     Active Substance: LACTULOSE
  39. LABETALOL [Concomitant]
     Active Substance: LABETALOL\LABETALOL HYDROCHLORIDE
  40. BACLOFEN [Concomitant]
     Active Substance: BACLOFEN
  41. HYDRALAZINE [Concomitant]
     Active Substance: HYDRALAZINE HYDROCHLORIDE
  42. BUMETANIDE [Concomitant]
     Active Substance: BUMETANIDE
  43. MONTELUKAST [Concomitant]
     Active Substance: MONTELUKAST SODIUM
  44. DEXTROSE [Concomitant]
     Active Substance: DEXTROSE
  45. NIFEDIPINE [Concomitant]
     Active Substance: NIFEDIPINE
  46. POLYETHYLENE GLYCOL [Concomitant]
     Active Substance: POLYETHYLENE GLYCOL
  47. DARBEPOETIN ALFA [Concomitant]
     Active Substance: DARBEPOETIN ALFA
  48. FENOFIBRATE [Concomitant]
     Active Substance: FENOFIBRATE
  49. DOCUSATE SODIUM [Concomitant]
     Active Substance: DOCUSATE SODIUM

REACTIONS (5)
  - Acute kidney injury [Fatal]
  - Chronic kidney disease [Unknown]
  - End stage renal disease [Unknown]
  - Renal failure [Unknown]
  - Nephrogenic anaemia [Unknown]

NARRATIVE: CASE EVENT DATE: 20160101
